FAERS Safety Report 11108378 (Version 1)
Quarter: 2015Q2

REPORT INFORMATION
  Report Type: Report from Study
  Country: US (occurrence: US)
  Receive Date: 20150512
  Receipt Date: 20150512
  Transmission Date: 20150821
  Serious: Yes (Hospitalization, Other)
  Sender: FDA-Public Use
  Company Number: US-TEVA-552141USA

PATIENT
  Age: 32 Year
  Sex: Male

DRUGS (1)
  1. COPAXONE [Suspect]
     Active Substance: GLATIRAMER ACETATE
     Indication: MULTIPLE SCLEROSIS
     Dates: start: 20090106

REACTIONS (6)
  - Pyrexia [Recovered/Resolved]
  - Immunosuppression [Recovered/Resolved]
  - Diplegia [Recovered/Resolved]
  - Multiple sclerosis [Unknown]
  - Urinary tract infection [Recovered/Resolved]
  - Drug ineffective [Unknown]

NARRATIVE: CASE EVENT DATE: 2015
